FAERS Safety Report 5414883-X (Version None)
Quarter: 2007Q3

REPORT INFORMATION
  Report Type: 
  Country: None (occurrence: None)
  Receive Date: 20070815
  Receipt Date: 20060711
  Transmission Date: 20080115
  Serious: No
  Sender: FDA-Public Use
  Company Number: US-KINGPHARMUSA00001-K200600907

PATIENT

DRUGS (1)
  1. SEPTRA [Suspect]
     Route: 048
     Dates: start: 20060701

REACTIONS (1)
  - AMENORRHOEA [None]
